FAERS Safety Report 17810995 (Version 2)
Quarter: 2020Q2

REPORT INFORMATION
  Report Type: Spontaneous
  Country: CZ (occurrence: CZ)
  Receive Date: 20200521
  Receipt Date: 20200527
  Transmission Date: 20200714
  Serious: Yes (Other)
  Sender: FDA-Public Use
  Company Number: CZ-BAUSCH-BL-2020-014564

PATIENT
  Age: 67 Year
  Sex: Male

DRUGS (12)
  1. RITUXIMAB. [Concomitant]
     Active Substance: RITUXIMAB
     Dosage: RITUXIMAB WITH GEMCITABINE; PIX306 STUDY; 4 THERAPY CYCLES
     Dates: start: 2015
  2. RITUXIMAB. [Concomitant]
     Active Substance: RITUXIMAB
     Dosage: RITUXIMAB WITH PIXANTRONE; PIX306 STUDY; 4 THERAPY CYCLES
     Dates: start: 2015
  3. RITUXIMAB. [Concomitant]
     Active Substance: RITUXIMAB
     Indication: DIFFUSE LARGE B-CELL LYMPHOMA STAGE IV
     Dosage: R-CHOP 6 CYCLES
  4. RITUXIMAB. [Concomitant]
     Active Substance: RITUXIMAB
     Dosage: 2 CYCLES
  5. GEMCITABINE. [Concomitant]
     Active Substance: GEMCITABINE
     Indication: DIFFUSE LARGE B-CELL LYMPHOMA STAGE II
     Dosage: RANDOMIZED TO THE GEMCITABINE ARM; 4 THERAPY CYCLES
     Dates: start: 2015
  6. CYCLOPHOSPHAMIDE. [Concomitant]
     Active Substance: CYCLOPHOSPHAMIDE
     Indication: DIFFUSE LARGE B-CELL LYMPHOMA STAGE IV
     Dosage: 6 CYCLES
  7. DEXAMETHASONE. [Suspect]
     Active Substance: DEXAMETHASONE
     Indication: DIFFUSE LARGE B-CELL LYMPHOMA STAGE II
     Dosage: 3 CYCLES
     Route: 065
     Dates: start: 2015
  8. PREDNISONE. [Concomitant]
     Active Substance: PREDNISONE
     Indication: DIFFUSE LARGE B-CELL LYMPHOMA STAGE IV
     Dosage: 6 CYCLES
  9. DOXORUBICIN [Concomitant]
     Active Substance: DOXORUBICIN
     Indication: DIFFUSE LARGE B-CELL LYMPHOMA STAGE IV
     Dosage: 6 CYCLES
  10. PERINDOPRIL [Concomitant]
     Active Substance: PERINDOPRIL
     Indication: HYPERTENSION
  11. PIXANTRONE [Concomitant]
     Active Substance: PIXANTRONE
     Indication: DIFFUSE LARGE B-CELL LYMPHOMA STAGE II
     Dosage: PIX306 CLINICAL STUDY; 4 THERAPY CYCLES
     Dates: start: 2015
  12. VINCRISTINE [Concomitant]
     Active Substance: VINCRISTINE
     Indication: DIFFUSE LARGE B-CELL LYMPHOMA STAGE IV
     Dosage: 6 CYCLES

REACTIONS (1)
  - Therapy partial responder [Unknown]

NARRATIVE: CASE EVENT DATE: 201602
